FAERS Safety Report 6897032-0 (Version None)
Quarter: 2010Q3

REPORT INFORMATION
  Report Type: 
  Country: None (occurrence: None)
  Receive Date: 20100729
  Receipt Date: 20100723
  Transmission Date: 20110219
  Serious: Yes (Other)
  Sender: FDA-Public Use
  Company Number: WAES 0910USA01303

PATIENT
  Age: 39 Year
  Sex: Male

DRUGS (4)
  1. RALTEGRAVIR POTASSIUM [Suspect]
     Indication: HIV INFECTION
     Dosage: 400 MG/BID, PO; 400 MG/BID
     Route: 048
     Dates: start: 20090920, end: 20100309
  2. RALTEGRAVIR POTASSIUM [Suspect]
     Indication: HIV INFECTION
     Dosage: 400 MG/BID, PO; 400 MG/BID
     Route: 048
     Dates: start: 20100316
  3. LAMIVUDINE AND ZIDOVUDINE [Suspect]
     Indication: HIV INFECTION
     Dosage: 1 TAB/BID, PO
     Route: 048
     Dates: start: 20090820
  4. TAB ALUVIA (LOPINAVIR (+) (RITONAVIR) [Suspect]
     Indication: HIV INFECTION
     Dosage: 1 TAB/BID, PO
     Route: 048
     Dates: start: 20090820

REACTIONS (15)
  - DEAFNESS BILATERAL [None]
  - DEAFNESS NEUROSENSORY [None]
  - DEAFNESS TRANSITORY [None]
  - DIARRHOEA [None]
  - DIZZINESS [None]
  - DYSSTASIA [None]
  - ECZEMA [None]
  - GASTRITIS [None]
  - IMMUNE RECONSTITUTION SYNDROME [None]
  - IMPETIGO [None]
  - NEUROPATHY PERIPHERAL [None]
  - PAIN [None]
  - RHINITIS ALLERGIC [None]
  - UPPER RESPIRATORY TRACT INFECTION [None]
  - VESTIBULITIS [None]
